FAERS Safety Report 8995328 (Version 2)
Quarter: 2013Q1

REPORT INFORMATION
  Report Type: Report from Study
  Country: GB (occurrence: GB)
  Receive Date: 20130103
  Receipt Date: 20130118
  Transmission Date: 20140127
  Serious: Yes (Hospitalization)
  Sender: FDA-Public Use
  Company Number: GB-ROCHE-1173825

PATIENT
  Age: 67 Year
  Sex: 0

DRUGS (2)
  1. VEMURAFENIB [Suspect]
     Indication: MALIGNANT MELANOMA
     Dosage: DRUG INTERRUPTED
     Route: 048
     Dates: start: 20121123
  2. VEMURAFENIB [Suspect]
     Dosage: DRUG RESTARTED WITH REDUCED DOSE
     Route: 048

REACTIONS (1)
  - Dermatitis bullous [Recovered/Resolved]
